FAERS Safety Report 7139085-0 (Version None)
Quarter: 2010Q4

REPORT INFORMATION
  Report Type: 
  Country: None (occurrence: None)
  Receive Date: 20101206
  Receipt Date: 20101126
  Transmission Date: 20110411
  Serious: Yes (Death)
  Sender: FDA-Public Use
  Company Number: B0679853B

PATIENT
  Sex: Female
  Weight: 62 kg

DRUGS (4)
  1. LAPATINIB [Suspect]
     Indication: BREAST CANCER
     Dosage: 1500MG PER DAY
     Route: 048
     Dates: start: 20100210, end: 20100331
  2. DOCETAXEL [Suspect]
     Indication: BREAST CANCER
     Dosage: 75MGM2 EVERY 3 WEEKS
     Route: 042
     Dates: start: 20091009
  3. TRASTUZUMAB [Suspect]
     Indication: BREAST CANCER
     Dosage: 2MGK WEEKLY
     Route: 042
     Dates: start: 20091009
  4. TRASTUZUMAB [Concomitant]
     Dosage: 372MG EVERY 3 WEEKS
     Route: 042
     Dates: start: 20100514, end: 20100827

REACTIONS (6)
  - DEATH [None]
  - DIARRHOEA [None]
  - FALL [None]
  - HEAD INJURY [None]
  - HYPOTENSION [None]
  - PYREXIA [None]
